FAERS Safety Report 7717377-1 (Version None)
Quarter: 2011Q3

REPORT INFORMATION
  Report Type: 
  Country: None (occurrence: None)
  Receive Date: 20110824
  Receipt Date: 20110816
  Transmission Date: 20111222
  Serious: Yes (Hospitalization)
  Sender: FDA-Public Use
  Company Number: 1000022996

PATIENT
  Age: 60 Year
  Sex: Female
  Weight: 63.9 kg

DRUGS (24)
  1. XANAX [Suspect]
     Dosage: 1/2 TABLET
  2. CARDIZEM [Suspect]
  3. LOSARTAN POTASSIUM [Suspect]
  4. AVAPRO [Suspect]
     Indication: HYPERTENSION
  5. BENICAR [Suspect]
     Indication: HYPERTENSION
     Dates: start: 20070101, end: 20070101
  6. LEVOTHYROXINE SODIUM [Concomitant]
  7. CLONIDINE [Concomitant]
  8. LIDOCAINE [Suspect]
     Indication: NAIL OPERATION
     Dates: start: 20100513, end: 20100513
  9. DILANTIN [Suspect]
     Dates: end: 19960101
  10. CIPROFLOXACIN [Suspect]
  11. BACTRIM [Suspect]
  12. NORVASC [Suspect]
     Indication: HYPERTENSION
     Dosage: 2.5 MG (W.5 MG,1 IN 1 D), ORAL 5 MG 5 MG, 1 IN 1 D), ORAL 10 MG (5 MG, 2 IN 1 D), ORAL
     Route: 048
     Dates: start: 19970101
  13. NORVASC [Suspect]
     Indication: HYPERTENSION
     Dosage: 2.5 MG (W.5 MG,1 IN 1 D), ORAL 5 MG 5 MG, 1 IN 1 D), ORAL 10 MG (5 MG, 2 IN 1 D), ORAL
     Route: 048
     Dates: start: 20100101
  14. NORVASC [Suspect]
     Indication: HYPERTENSION
     Dosage: 2.5 MG (W.5 MG,1 IN 1 D), ORAL 5 MG 5 MG, 1 IN 1 D), ORAL 10 MG (5 MG, 2 IN 1 D), ORAL
     Route: 048
     Dates: start: 19950101
  15. LISINOPRIL [Suspect]
  16. MACROBID [Suspect]
  17. DEPAKOTE [Suspect]
     Indication: CONVULSION
     Dates: start: 19960101
  18. REGLAN [Concomitant]
  19. LEVAQUIN [Suspect]
  20. DIOVAN [Suspect]
  21. ATACAND [Suspect]
     Dosage: 32 MG (32 MG, 1 IN 1 D)
  22. BYSTOLIC [Suspect]
  23. FUROSEMIDE [Suspect]
     Dosage: 20 MG (20 MG)
  24. HYDROCHLOROTHIAZIDE [Suspect]

REACTIONS (13)
  - CYSTITIS [None]
  - PALPITATIONS [None]
  - INSOMNIA [None]
  - BLOOD PRESSURE INCREASED [None]
  - LOSS OF CONSCIOUSNESS [None]
  - BURNING SENSATION [None]
  - ABDOMINAL DISTENSION [None]
  - INGROWING NAIL [None]
  - HEADACHE [None]
  - BLOOD COUNT ABNORMAL [None]
  - ERYTHEMA [None]
  - DIZZINESS [None]
  - WEIGHT DECREASED [None]
